FAERS Safety Report 4804558-X (Version None)
Quarter: 2005Q4

REPORT INFORMATION
  Report Type: 
  Country: None (occurrence: None)
  Receive Date: 20051020
  Receipt Date: 20050629
  Transmission Date: 20060501
  Serious: Yes (Other)
  Sender: FDA-Public Use
  Company Number: US-MERCK-0507USA00199

PATIENT
  Age: 61 Year
  Sex: Female
  Weight: 70 kg

DRUGS (10)
  1. VIOXX [Suspect]
     Indication: ARTHRITIS
     Route: 048
     Dates: start: 20040604, end: 20040918
  2. ASPIRIN [Concomitant]
     Route: 048
     Dates: start: 19940101
  3. CRESTOR [Concomitant]
     Route: 048
     Dates: start: 20040901
  4. CRESTOR [Concomitant]
     Route: 048
     Dates: start: 20040901, end: 20050801
  5. FLONASE [Concomitant]
     Route: 055
  6. ALLEGRA [Concomitant]
     Route: 048
  7. NORITATE [Concomitant]
     Route: 061
  8. ACYCLOVIR [Concomitant]
     Route: 065
  9. PROTONIX [Concomitant]
     Route: 065
  10. PREDNISONE [Concomitant]
     Route: 065

REACTIONS (1)
  - CEREBROVASCULAR ACCIDENT [None]
